FAERS Safety Report 4663675-8 (Version None)
Quarter: 2005Q2

REPORT INFORMATION
  Report Type: 
  Country: None (occurrence: None)
  Receive Date: 20050517
  Receipt Date: 20050407
  Transmission Date: 20051028
  Serious: Yes (Death)
  Sender: FDA-Public Use
  Company Number: 2005S1001906

PATIENT
  Age: 41 Year
  Sex: Female
  Weight: 102.0593 kg

DRUGS (8)
  1. CLOZAPINE [Suspect]
     Dosage: 25 MG
     Dates: end: 20050301
  2. CLOZAPINE [Suspect]
     Dosage: 100 MG
     Dates: end: 20050301
  3. DISULFIRAM [Concomitant]
  4. BUSPIRONE HCL [Concomitant]
  5. VNLAFAXINE [Concomitant]
  6. HYDROCHLORIDE [Concomitant]
  7. CLONAZEPAM [Concomitant]
  8. OMEPRAZOLE [Concomitant]

REACTIONS (1)
  - DEATH [None]
